FAERS Safety Report 11857323 (Version 2)
Quarter: 2016Q1

REPORT INFORMATION
  Report Type: Spontaneous
  Country: US (occurrence: US)
  Receive Date: 20151221
  Receipt Date: 20160120
  Transmission Date: 20160526
  Serious: Yes (Hospitalization)
  Sender: FDA-Public Use
  Company Number: US-AMAG PHARMACEUTICALS, INC.-AMAG201501435

PATIENT

DRUGS (11)
  1. HYDRALAZINE [Concomitant]
     Active Substance: HYDRALAZINE HYDROCHLORIDE
  2. DIGOXIN. [Concomitant]
     Active Substance: DIGOXIN
  3. CARVEDILOL. [Concomitant]
     Active Substance: CARVEDILOL
  4. POTASSIUM [Concomitant]
     Active Substance: POTASSIUM
  5. BENTOL [Concomitant]
  6. FERAHEME [Suspect]
     Active Substance: FERUMOXYTOL NON-STOICHIOMETRIC MAGNETITE
     Indication: IRON DEFICIENCY ANAEMIA
     Dosage: 8 ML SINGLE- TOTAL DOSE DILUTED IN 50 CC NS
     Dates: start: 20161217, end: 20161217
  7. BUMETANIDE. [Concomitant]
     Active Substance: BUMETANIDE
  8. LORAZEPAM. [Concomitant]
     Active Substance: LORAZEPAM
  9. OXYGEN. [Concomitant]
     Active Substance: OXYGEN
     Dosage: 2 UNK, UNK
     Route: 055
  10. LOSARTAN. [Concomitant]
     Active Substance: LOSARTAN
  11. XARELTO [Concomitant]
     Active Substance: RIVAROXABAN

REACTIONS (7)
  - Seizure [Recovered/Resolved]
  - Fluid overload [Unknown]
  - Unresponsive to stimuli [Recovered/Resolved]
  - Dyspnoea [Recovered/Resolved]
  - Syncope [Unknown]
  - Cyanosis [Recovered/Resolved]
  - Hypotension [Recovered/Resolved]

NARRATIVE: CASE EVENT DATE: 20151217
